FAERS Safety Report 13518833 (Version 1)
Quarter: 2017Q2

REPORT INFORMATION
  Report Type: Spontaneous
  Country: US (occurrence: US)
  Receive Date: 20170505
  Receipt Date: 20170505
  Transmission Date: 20170830
  Serious: Yes (Other)
  Sender: FDA-Public Use
  Company Number: US-TAKEDA-2017TJP009593

PATIENT
  Sex: Female

DRUGS (2)
  1. PREVACID [Suspect]
     Active Substance: LANSOPRAZOLE
     Indication: HYPERCHLORHYDRIA
     Dosage: UNK
     Route: 048
     Dates: start: 2012, end: 2015
  2. NEXIUM [Suspect]
     Active Substance: ESOMEPRAZOLE MAGNESIUM
     Indication: HYPERCHLORHYDRIA
     Dosage: UNK
     Route: 048
     Dates: start: 2012, end: 2015

REACTIONS (1)
  - Acute kidney injury [Unknown]
